FAERS Safety Report 12630880 (Version 1)
Quarter: 2016Q3

REPORT INFORMATION
  Report Type: Spontaneous
  Country: US (occurrence: US)
  Receive Date: 20160808
  Receipt Date: 20160808
  Transmission Date: 20161109
  Serious: No
  Sender: FDA-Public Use
  Company Number: US-PFIZER INC-2016372555

PATIENT
  Age: 61 Year
  Sex: Female

DRUGS (1)
  1. IBRANCE [Suspect]
     Active Substance: PALBOCICLIB
     Indication: NEOPLASM MALIGNANT
     Dosage: 125 MG, CYCLIC (TAKE 1 CAPSULE BY MOUTH DAILY ON DAYS 1-21AND 7 DAYS OFF)
     Route: 048
     Dates: start: 20160713

REACTIONS (7)
  - Pruritus [Unknown]
  - Disease progression [Unknown]
  - Alopecia [Unknown]
  - Neoplasm malignant [Unknown]
  - Stomatitis [Unknown]
  - Diarrhoea [Unknown]
  - Headache [Unknown]
